FAERS Safety Report 9897886 (Version 1)
Quarter: 2014Q1

REPORT INFORMATION
  Report Type: Spontaneous
  Country: US (occurrence: US)
  Receive Date: 20140214
  Receipt Date: 20140214
  Transmission Date: 20141002
  Serious: Yes (Other)
  Sender: FDA-Public Use
  Company Number: US-TEVA-461939USA

PATIENT
  Sex: Female

DRUGS (1)
  1. ACTIQ [Suspect]

REACTIONS (3)
  - General physical health deterioration [Not Recovered/Not Resolved]
  - Bone disorder [Not Recovered/Not Resolved]
  - Activities of daily living impaired [Not Recovered/Not Resolved]
